FAERS Safety Report 4378007-2 (Version None)
Quarter: 2004Q2

REPORT INFORMATION
  Report Type: 
  Country: None (occurrence: None)
  Receive Date: 20040609
  Receipt Date: 20040526
  Transmission Date: 20050107
  Serious: Yes (Hospitalization)
  Sender: FDA-Public Use
  Company Number: 2004215782DE

PATIENT
  Sex: Female
  Weight: 60 kg

DRUGS (2)
  1. EPIRUBICIN [Suspect]
     Indication: BREAST CANCER
     Dosage: 150 MG/M2, CYCLIC, IV; 150 MG/M2, CYCLIC, IV
     Route: 042
     Dates: start: 20040405, end: 20040405
  2. EPIRUBICIN [Suspect]
     Indication: BREAST CANCER
     Dosage: 150 MG/M2, CYCLIC, IV; 150 MG/M2, CYCLIC, IV
     Route: 042
     Dates: start: 20040510, end: 20040510

REACTIONS (4)
  - CHEST PAIN [None]
  - INFECTION [None]
  - NEUTROPENIA [None]
  - PYREXIA [None]
